FAERS Safety Report 6226894-5 (Version None)
Quarter: 2009Q2

REPORT INFORMATION
  Report Type: 
  Country: None (occurrence: None)
  Receive Date: 20090612
  Receipt Date: 20090609
  Transmission Date: 20091009
  Serious: Yes (Other)
  Sender: FDA-Public Use
  Company Number: US-BRISTOL-MYERS SQUIBB COMPANY-14655690

PATIENT
  Age: 35 Year
  Sex: Female
  Weight: 73 kg

DRUGS (6)
  1. EFAVIRENZ [Suspect]
     Indication: HIV INFECTION
     Route: 048
     Dates: start: 20051208, end: 20090329
  2. BLINDED: TENOFOVIR DF + EMTRICITABINE [Suspect]
     Indication: HIV INFECTION
     Route: 048
     Dates: start: 20051208, end: 20090329
  3. ABACAVIR SULFATE/LAMIVUDINE [Suspect]
     Indication: HIV INFECTION
     Route: 048
     Dates: start: 20051208, end: 20090329
  4. BLINDED: PLACEBO [Suspect]
     Indication: HIV INFECTION
     Route: 048
     Dates: start: 20051208, end: 20090329
  5. KALETRA [Concomitant]
     Dosage: TAKEN 1 MONTH + 2 WEEKS
  6. COMBIVIR [Concomitant]
     Dosage: TAKEN 1 MONTH + 2 WEEKS

REACTIONS (2)
  - ABORTION SPONTANEOUS [None]
  - PREGNANCY [None]
